FAERS Safety Report 4587395-3 (Version None)
Quarter: 2005Q1

REPORT INFORMATION
  Report Type: 
  Country: None (occurrence: None)
  Receive Date: 20050218
  Receipt Date: 20050209
  Transmission Date: 20050727
  Serious: Yes (Other)
  Sender: FDA-Public Use
  Company Number: US-JNJFOC-20050202882

PATIENT
  Sex: Male
  Weight: 68.95 kg

DRUGS (1)
  1. REMICADE [Suspect]
     Indication: RHEUMATOID ARTHRITIS
     Dosage: 2 VIALS EVERY 8 WEEKS
     Route: 042

REACTIONS (1)
  - NEUROENDOCRINE CARCINOMA OF THE SKIN [None]
